FAERS Safety Report 21471926 (Version 1)
Quarter: 2022Q4

REPORT INFORMATION
  Report Type: Spontaneous
  Country: BR (occurrence: BR)
  Receive Date: 20221018
  Receipt Date: 20221018
  Transmission Date: 20230112
  Serious: Yes (Other)
  Sender: FDA-Public Use
  Company Number: BR-PFIZER INC-202201135075

PATIENT
  Age: 66 Year
  Sex: Female

DRUGS (2)
  1. LORAZEPAM [Suspect]
     Active Substance: LORAZEPAM
     Indication: Anxiety
     Dosage: 1 MG, DAILY (1/2 2MG TABLET PER DAY)
     Dates: start: 1992
  2. LORAZEPAM [Suspect]
     Active Substance: LORAZEPAM
     Indication: Nervousness
     Dosage: 7 MG, DAILY (THREE AND A HALF 2MG TABLETS DAILY)

REACTIONS (12)
  - Suicidal ideation [Unknown]
  - Drug dependence [Not Recovered/Not Resolved]
  - Product use issue [Not Recovered/Not Resolved]
  - Insomnia [Not Recovered/Not Resolved]
  - Feeling of despair [Not Recovered/Not Resolved]
  - Nervousness [Not Recovered/Not Resolved]
  - Malaise [Not Recovered/Not Resolved]
  - Aggression [Not Recovered/Not Resolved]
  - Product supply issue [Not Recovered/Not Resolved]
  - Intentional product misuse [Unknown]
  - Prescription drug used without a prescription [Unknown]
  - Mental disorder [Not Recovered/Not Resolved]

NARRATIVE: CASE EVENT DATE: 20220701
